FAERS Safety Report 12843306 (Version 1)
Quarter: 2016Q4

REPORT INFORMATION
  Report Type: Spontaneous
  Country: MY (occurrence: MY)
  Receive Date: 20161013
  Receipt Date: 20161013
  Transmission Date: 20170207
  Serious: Yes (Death)
  Sender: FDA-Public Use
  Company Number: MY-ABBVIE-16P-101-1737908-00

PATIENT
  Age: 60 Year
  Sex: Female

DRUGS (1)
  1. PARICALCITOL. [Suspect]
     Active Substance: PARICALCITOL
     Indication: PRODUCT USED FOR UNKNOWN INDICATION
     Route: 050

REACTIONS (3)
  - Hypotension [Unknown]
  - Weight decreased [Unknown]
  - Death [Fatal]

NARRATIVE: CASE EVENT DATE: 20161011
